FAERS Safety Report 25837865 (Version 1)
Quarter: 2025Q3

REPORT INFORMATION
  Report Type: Spontaneous
  Country: EU (occurrence: EU)
  Receive Date: 20250923
  Receipt Date: 20250923
  Transmission Date: 20251020
  Serious: Yes (Other)
  Sender: MYLAN
  Company Number: None

PATIENT
  Sex: Male

DRUGS (24)
  1. LEVETIRACETAM [Interacting]
     Active Substance: LEVETIRACETAM
     Indication: Product used for unknown indication
     Dates: start: 202507, end: 202507
  2. LEVETIRACETAM [Interacting]
     Active Substance: LEVETIRACETAM
     Route: 048
     Dates: start: 202507, end: 202507
  3. LEVETIRACETAM [Interacting]
     Active Substance: LEVETIRACETAM
     Route: 048
     Dates: start: 202507, end: 202507
  4. LEVETIRACETAM [Interacting]
     Active Substance: LEVETIRACETAM
     Dates: start: 202507, end: 202507
  5. QUETIAPINE [Interacting]
     Active Substance: QUETIAPINE
     Indication: Product used for unknown indication
     Dates: start: 202507, end: 202507
  6. QUETIAPINE [Interacting]
     Active Substance: QUETIAPINE
     Route: 048
     Dates: start: 202507, end: 202507
  7. QUETIAPINE [Interacting]
     Active Substance: QUETIAPINE
     Route: 048
     Dates: start: 202507, end: 202507
  8. QUETIAPINE [Interacting]
     Active Substance: QUETIAPINE
     Dates: start: 202507, end: 202507
  9. AMOXICILLIN\CLAVULANIC ACID [Interacting]
     Active Substance: AMOXICILLIN\CLAVULANIC ACID
     Indication: Product used for unknown indication
     Dates: start: 202507, end: 202507
  10. AMOXICILLIN\CLAVULANIC ACID [Interacting]
     Active Substance: AMOXICILLIN\CLAVULANIC ACID
     Route: 048
     Dates: start: 202507, end: 202507
  11. AMOXICILLIN\CLAVULANIC ACID [Interacting]
     Active Substance: AMOXICILLIN\CLAVULANIC ACID
     Route: 048
     Dates: start: 202507, end: 202507
  12. AMOXICILLIN\CLAVULANIC ACID [Interacting]
     Active Substance: AMOXICILLIN\CLAVULANIC ACID
     Dates: start: 202507, end: 202507
  13. BISOPROLOL [Interacting]
     Active Substance: BISOPROLOL
     Indication: Product used for unknown indication
     Dates: start: 202507, end: 202507
  14. BISOPROLOL [Interacting]
     Active Substance: BISOPROLOL
     Route: 048
     Dates: start: 202507, end: 202507
  15. BISOPROLOL [Interacting]
     Active Substance: BISOPROLOL
     Route: 048
     Dates: start: 202507, end: 202507
  16. BISOPROLOL [Interacting]
     Active Substance: BISOPROLOL
     Dates: start: 202507, end: 202507
  17. LOSARTAN [Interacting]
     Active Substance: LOSARTAN
     Indication: Product used for unknown indication
     Dates: start: 202507, end: 202507
  18. LOSARTAN [Interacting]
     Active Substance: LOSARTAN
     Route: 048
     Dates: start: 202507, end: 202507
  19. LOSARTAN [Interacting]
     Active Substance: LOSARTAN
     Route: 048
     Dates: start: 202507, end: 202507
  20. LOSARTAN [Interacting]
     Active Substance: LOSARTAN
     Dates: start: 202507, end: 202507
  21. RISPERIDONE [Interacting]
     Active Substance: RISPERIDONE
     Indication: Product used for unknown indication
     Dates: start: 202507, end: 202507
  22. RISPERIDONE [Interacting]
     Active Substance: RISPERIDONE
     Route: 048
     Dates: start: 202507, end: 202507
  23. RISPERIDONE [Interacting]
     Active Substance: RISPERIDONE
     Route: 048
     Dates: start: 202507, end: 202507
  24. RISPERIDONE [Interacting]
     Active Substance: RISPERIDONE
     Dates: start: 202507, end: 202507

REACTIONS (3)
  - Hypotension [Recovered/Resolved]
  - Wrong patient received product [Recovered/Resolved]
  - Wrong drug [Recovered/Resolved]

NARRATIVE: CASE EVENT DATE: 20250701
